FAERS Safety Report 12497399 (Version 2)
Quarter: 2016Q3

REPORT INFORMATION
  Report Type: Report from Study
  Country: DE (occurrence: DE)
  Receive Date: 20160624
  Receipt Date: 20160701
  Transmission Date: 20161109
  Serious: Yes (Hospitalization)
  Sender: FDA-Public Use
  Company Number: US-ASTRAZENECA-2016SE69397

PATIENT
  Age: 222 Day
  Sex: Male
  Weight: 4.3 kg

DRUGS (27)
  1. SYNAGIS [Suspect]
     Active Substance: PALIVIZUMAB
     Indication: OESOPHAGEAL ATRESIA
     Dosage: 60 MG
     Route: 030
     Dates: start: 20150928, end: 20150928
  2. SYNAGIS [Suspect]
     Active Substance: PALIVIZUMAB
     Indication: OESOPHAGEAL ATRESIA
     Route: 030
     Dates: start: 20160224, end: 20160224
  3. SYNAGIS [Suspect]
     Active Substance: PALIVIZUMAB
     Indication: PREMATURE BABY
     Dosage: 60 MG
     Route: 030
     Dates: start: 20150928, end: 20150928
  4. SYNAGIS [Suspect]
     Active Substance: PALIVIZUMAB
     Indication: PREMATURE BABY
     Route: 030
     Dates: start: 20151124, end: 20151124
  5. SYNAGIS [Suspect]
     Active Substance: PALIVIZUMAB
     Indication: PREMATURE BABY
     Route: 030
     Dates: start: 20151229, end: 20151229
  6. SYNAGIS [Suspect]
     Active Substance: PALIVIZUMAB
     Indication: OESOPHAGEAL ATRESIA
     Route: 030
     Dates: start: 20151229, end: 20151229
  7. SYNAGIS [Suspect]
     Active Substance: PALIVIZUMAB
     Indication: PREMATURE BABY
     Route: 030
     Dates: start: 20160224, end: 20160224
  8. SYNAGIS [Suspect]
     Active Substance: PALIVIZUMAB
     Indication: ANTIVIRAL PROPHYLAXIS
     Route: 030
     Dates: start: 20160427, end: 20160427
  9. PNEUMOCOCCAL VACCINE POLYVALENT NOS [Concomitant]
     Active Substance: PNEUMOCOCCAL VACCINE POLYVALENT
     Route: 048
     Dates: start: 20150901, end: 20150901
  10. SYNAGIS [Suspect]
     Active Substance: PALIVIZUMAB
     Indication: ANTIVIRAL PROPHYLAXIS
     Dosage: 60 MG
     Route: 030
     Dates: start: 20150928, end: 20150928
  11. SYNAGIS [Suspect]
     Active Substance: PALIVIZUMAB
     Indication: OESOPHAGEAL ATRESIA
     Route: 030
     Dates: start: 20160427, end: 20160427
  12. SYNAGIS [Suspect]
     Active Substance: PALIVIZUMAB
     Indication: OESOPHAGEAL ATRESIA
     Route: 030
     Dates: start: 20151027, end: 20151027
  13. SYNAGIS [Suspect]
     Active Substance: PALIVIZUMAB
     Indication: ANTIVIRAL PROPHYLAXIS
     Route: 030
     Dates: start: 20160127, end: 20160127
  14. SYNAGIS [Suspect]
     Active Substance: PALIVIZUMAB
     Indication: ANTIVIRAL PROPHYLAXIS
     Route: 030
     Dates: start: 20160330, end: 20160330
  15. SYNAGIS [Suspect]
     Active Substance: PALIVIZUMAB
     Indication: PREMATURE BABY
     Route: 030
     Dates: start: 20160330, end: 20160330
  16. SYNAGIS [Suspect]
     Active Substance: PALIVIZUMAB
     Indication: ANTIVIRAL PROPHYLAXIS
     Route: 030
     Dates: start: 20151229, end: 20151229
  17. SYNAGIS [Suspect]
     Active Substance: PALIVIZUMAB
     Indication: PREMATURE BABY
     Route: 030
     Dates: start: 20160127, end: 20160127
  18. SYNAGIS [Suspect]
     Active Substance: PALIVIZUMAB
     Indication: OESOPHAGEAL ATRESIA
     Route: 030
     Dates: start: 20160330, end: 20160330
  19. SYNAGIS [Suspect]
     Active Substance: PALIVIZUMAB
     Indication: PREMATURE BABY
     Route: 030
     Dates: start: 20151027, end: 20151027
  20. SYNAGIS [Suspect]
     Active Substance: PALIVIZUMAB
     Indication: PREMATURE BABY
     Route: 030
     Dates: start: 20160427, end: 20160427
  21. SYNAGIS [Suspect]
     Active Substance: PALIVIZUMAB
     Indication: ANTIVIRAL PROPHYLAXIS
     Route: 030
     Dates: start: 20151027, end: 20151027
  22. SYNAGIS [Suspect]
     Active Substance: PALIVIZUMAB
     Indication: OESOPHAGEAL ATRESIA
     Route: 030
     Dates: start: 20151124, end: 20151124
  23. SYNAGIS [Suspect]
     Active Substance: PALIVIZUMAB
     Indication: ANTIVIRAL PROPHYLAXIS
     Route: 030
     Dates: start: 20160224, end: 20160224
  24. FERRO SANOL [Concomitant]
     Active Substance: FERROUS GLYCINE SULFATE
     Indication: ANAEMIA
     Dates: start: 201505
  25. SYNAGIS [Suspect]
     Active Substance: PALIVIZUMAB
     Indication: ANTIVIRAL PROPHYLAXIS
     Route: 030
     Dates: start: 20151124, end: 20151124
  26. SYNAGIS [Suspect]
     Active Substance: PALIVIZUMAB
     Indication: OESOPHAGEAL ATRESIA
     Route: 030
     Dates: start: 20160127, end: 20160127
  27. LEVOTHYROXINE. [Concomitant]
     Active Substance: LEVOTHYROXINE
     Indication: HYPOTHYROIDISM
     Route: 048
     Dates: start: 201505

REACTIONS (5)
  - Rhinovirus infection [Recovered/Resolved]
  - Bronchitis [Recovered/Resolved]
  - Inflammatory marker increased [Recovered/Resolved]
  - Influenza [Recovered/Resolved]
  - Superinfection bacterial [Recovered/Resolved]

NARRATIVE: CASE EVENT DATE: 20151219
